FAERS Safety Report 19170125 (Version 1)
Quarter: 2021Q2

REPORT INFORMATION
  Report Type: Spontaneous
  Country: US (occurrence: US)
  Receive Date: 20210422
  Receipt Date: 20210422
  Transmission Date: 20210717
  Serious: Yes (Hospitalization, Other)
  Sender: FDA-Public Use
  Company Number: US-GLAXOSMITHKLINE-US2021086090

PATIENT
  Sex: Male

DRUGS (2)
  1. TRELEGY ELLIPTA [Suspect]
     Active Substance: FLUTICASONE FUROATE\UMECLIDINIUM BROMIDE\VILANTEROL TRIFENATATE
     Indication: ASTHMA-CHRONIC OBSTRUCTIVE PULMONARY DISEASE OVERLAP SYNDROME
     Dosage: 1 PUFF(S), QD, 100?62.5MCG
     Route: 055
     Dates: start: 202001
  2. VENTOLIN HFA [Suspect]
     Active Substance: ALBUTEROL SULFATE
     Indication: ASTHMA-CHRONIC OBSTRUCTIVE PULMONARY DISEASE OVERLAP SYNDROME
     Dosage: 2 PUFF(S), Z, W/DOS CTR 200 PUFFS INHALE, EVERY 4 HOURS AS
     Route: 055
     Dates: start: 201601

REACTIONS (5)
  - Renal failure [Unknown]
  - Respiratory failure [Unknown]
  - Mobility decreased [Unknown]
  - Pneumonia [Unknown]
  - Multimorbidity [Unknown]
